FAERS Safety Report 6418222-7 (Version None)
Quarter: 2009Q4

REPORT INFORMATION
  Report Type: 
  Country: None (occurrence: None)
  Receive Date: 20091026
  Receipt Date: 20091013
  Transmission Date: 20100525
  Serious: Yes (Other)
  Sender: FDA-Public Use
  Company Number: ADR38672009

PATIENT
  Age: 63 Year
  Sex: Male

DRUGS (4)
  1. SIMVASTATIN [Suspect]
     Indication: PROPHYLAXIS
     Dosage: 40 MG/20 MG, ORAL
     Route: 048
     Dates: start: 20060501
  2. AMLODIPINE BESYLATE [Concomitant]
  3. ASPIRIN [Concomitant]
  4. RAMIPRIL [Concomitant]

REACTIONS (5)
  - ALANINE AMINOTRANSFERASE INCREASED [None]
  - BLOOD BILIRUBIN INCREASED [None]
  - BLOOD IRON DECREASED [None]
  - HAEMOGLOBIN DECREASED [None]
  - HEPATIC FUNCTION ABNORMAL [None]
